FAERS Safety Report 10273060 (Version 2)
Quarter: 2014Q3

REPORT INFORMATION
  Report Type: Spontaneous
  Country: DE (occurrence: None)
  Receive Date: 20140630
  Receipt Date: 20140721
  Transmission Date: 20150326
  Serious: Yes (Life-Threatening, Hospitalization)
  Sender: FDA-Public Use
  Company Number: DE-015984

PATIENT
  Age: 58 Year
  Sex: Female
  Weight: 62 kg

DRUGS (2)
  1. MACROGOL [Concomitant]
     Active Substance: POLYETHYLENE GLYCOLS
  2. PICOPREP [Suspect]
     Active Substance: CITRIC ACID MONOHYDRATE\MAGNESIUM OXIDE\SODIUM PICOSULFATE
     Indication: BOWEL PREPARATION
     Dosage: (1 DF TOTAL, FIRST SACHET TAKEN AT 14:00.  SECOND SACHET NOT TAKEN.)
     Dates: start: 20130526

REACTIONS (3)
  - Aphasia [None]
  - Altered state of consciousness [None]
  - Hyponatraemia [None]

NARRATIVE: CASE EVENT DATE: 20130526
